FAERS Safety Report 7978420-8 (Version None)
Quarter: 2011Q4

REPORT INFORMATION
  Report Type: 
  Country: None (occurrence: None)
  Receive Date: 20111214
  Receipt Date: 20111205
  Transmission Date: 20120403
  Serious: Yes (Death)
  Sender: FDA-Public Use
  Company Number: ES-JNJFOC-20110711226

PATIENT
  Sex: Female
  Weight: 70 kg

DRUGS (3)
  1. USTEKINUMAB [Suspect]
     Indication: PSORIASIS
     Route: 058
     Dates: start: 20091104, end: 20110411
  2. GLYBURIDE [Concomitant]
     Indication: PRODUCT USED FOR UNKNOWN INDICATION
     Route: 048
  3. ENALAPRIL MALEATE [Concomitant]
     Indication: ILL-DEFINED DISORDER
     Route: 048
     Dates: start: 19920101

REACTIONS (5)
  - DRUG INEFFECTIVE [None]
  - PANCREATIC CARCINOMA [None]
  - ASCITES [None]
  - PANCREATIC NEOPLASM [None]
  - METASTASES TO LUNG [None]
